FAERS Safety Report 8173680-5 (Version None)
Quarter: 2012Q1

REPORT INFORMATION
  Report Type: 
  Country: None (occurrence: None)
  Receive Date: 20120227
  Receipt Date: 20120214
  Transmission Date: 20120608
  Serious: Yes (Other)
  Sender: FDA-Public Use
  Company Number: 2012SP008504

PATIENT
  Sex: Female

DRUGS (5)
  1. TELAPREVIR [Suspect]
     Indication: HEPATITIS C
     Dates: start: 20111013, end: 20120126
  2. RIBAVIRIN [Suspect]
     Indication: HEPATITIS C
     Dates: start: 20111013
  3. INTRON A [Suspect]
     Indication: HEPATITIS C
     Dates: start: 20110101, end: 20110601
  4. PEG-INTRON [Suspect]
     Indication: HEPATITIS C
     Dates: start: 20111013
  5. PEG-INTRON [Suspect]
     Indication: HEPATITIS C
     Dates: start: 20000101, end: 20000301

REACTIONS (13)
  - MEMORY IMPAIRMENT [None]
  - DEPRESSION [None]
  - RASH PRURITIC [None]
  - DECREASED APPETITE [None]
  - BUCCAL MUCOSAL ROUGHENING [None]
  - DYSPHONIA [None]
  - WEIGHT DECREASED [None]
  - TONGUE DISORDER [None]
  - SKIN DISCOLOURATION [None]
  - TRANSFUSION [None]
  - SKIN EXFOLIATION [None]
  - MUSCULOSKELETAL STIFFNESS [None]
  - DRY SKIN [None]
